FAERS Safety Report 9316353 (Version 1)
Quarter: 2013Q2

REPORT INFORMATION
  Report Type: Spontaneous
  Country: SE (occurrence: SE)
  Receive Date: 20130530
  Receipt Date: 20130530
  Transmission Date: 20140414
  Serious: Yes (Death, Hospitalization)
  Sender: FDA-Public Use
  Company Number: SE-RANBAXY-2013R1-69513

PATIENT
  Age: 45 Year
  Sex: Female

DRUGS (1)
  1. PARACETAMOL [Suspect]
     Indication: PRODUCT USED FOR UNKNOWN INDICATION
     Dosage: UNK
     Route: 048

REACTIONS (9)
  - Methaemoglobinaemia [Unknown]
  - Coma [Unknown]
  - Metabolic acidosis [Unknown]
  - Multi-organ failure [Unknown]
  - Intentional overdose [Unknown]
  - Death [Fatal]
  - Hypothermia [None]
  - Hypotension [None]
  - Continuous haemodiafiltration [None]
